FAERS Safety Report 22753372 (Version 2)
Quarter: 2023Q4

REPORT INFORMATION
  Report Type: Spontaneous
  Country: US (occurrence: US)
  Receive Date: 20230726
  Receipt Date: 20231020
  Transmission Date: 20240110
  Serious: No
  Sender: FDA-Public Use
  Company Number: US-PFIZER INC-202300253697

PATIENT
  Age: 67 Year
  Sex: Female
  Weight: 49.887 kg

DRUGS (3)
  1. PAXLOVID [Suspect]
     Active Substance: NIRMATRELVIR\RITONAVIR
     Indication: COVID-19 treatment
     Dosage: UNK, 2X/DAY
     Dates: start: 20230705, end: 20230710
  2. CALCIUM [Concomitant]
     Active Substance: CALCIUM
     Dosage: (NATURE^S BLEND)
     Dates: start: 20230706
  3. VITAMIN D3 [Concomitant]
     Active Substance: CHOLECALCIFEROL
     Dosage: (KIRKLAND)
     Dates: start: 20230706

REACTIONS (5)
  - Oropharyngeal pain [Recovered/Resolved]
  - Oral lichen planus [Recovered/Resolved]
  - Dysgeusia [Unknown]
  - Cough [Unknown]
  - Throat irritation [Recovered/Resolved]

NARRATIVE: CASE EVENT DATE: 20230101
